FAERS Safety Report 25019937 (Version 2)
Quarter: 2025Q1

REPORT INFORMATION
  Report Type: Spontaneous
  Country: US (occurrence: US)
  Receive Date: 20250227
  Receipt Date: 20250305
  Transmission Date: 20250409
  Serious: No
  Sender: BOEHRINGER INGELHEIM
  Company Number: US-BoehringerIngelheim-2025-BI-011950

PATIENT
  Age: 54 Year
  Sex: Female

DRUGS (2)
  1. JARDIANCE [Suspect]
     Active Substance: EMPAGLIFLOZIN
     Indication: Type 2 diabetes mellitus
  2. MOUNJARO [Concomitant]
     Active Substance: TIRZEPATIDE
     Indication: Product used for unknown indication

REACTIONS (8)
  - Glycosylated haemoglobin increased [Unknown]
  - Protein urine [Recovered/Resolved]
  - Glucose urine present [Recovered/Resolved]
  - Lethargy [Unknown]
  - Brain fog [Unknown]
  - Fatigue [Unknown]
  - Malaise [Unknown]
  - Diabetes mellitus inadequate control [Unknown]
